FAERS Safety Report 7817580-6 (Version None)
Quarter: 2011Q4

REPORT INFORMATION
  Report Type: 
  Country: None (occurrence: None)
  Receive Date: 20111017
  Receipt Date: 20111005
  Transmission Date: 20120403
  Serious: Yes (Disabling, Other)
  Sender: FDA-Public Use
  Company Number: PHFR2011GB03125

PATIENT
  Sex: Female

DRUGS (7)
  1. FERROUS FUMARATE [Concomitant]
     Dosage: TDS
     Route: 048
     Dates: start: 20110411
  2. ARIPIPRAZOLE [Concomitant]
     Indication: PSYCHOTIC DISORDER
     Dosage: 10 MG, QD
     Route: 048
  3. METFORMIN HYDROCHLORIDE [Concomitant]
     Route: 048
  4. OXYBUTYNIN [Concomitant]
     Route: 048
  5. CLOZARIL [Suspect]
     Indication: SCHIZOPHRENIA
     Dosage: 500 MG, NOCTE
     Route: 048
     Dates: start: 20031128
  6. DIAZEPAM [Concomitant]
     Route: 048
  7. CLOZARIL [Suspect]
     Indication: PSYCHOTIC DISORDER
     Dosage: 450 MG, NOCTE
     Route: 048
     Dates: start: 20110609

REACTIONS (2)
  - HAEMOGLOBIN DECREASED [None]
  - LUNG NEOPLASM MALIGNANT [None]
